FAERS Safety Report 5233527-3 (Version None)
Quarter: 2007Q1

REPORT INFORMATION
  Report Type: 
  Country: None (occurrence: None)
  Receive Date: 20061208
  Receipt Date: 20060313
  Transmission Date: 20070707
  Serious: Yes (Other)
  Sender: FDA-Public Use
  Company Number: 2006UW04214

PATIENT
  Sex: Female

DRUGS (2)
  1. CRESTOR [Suspect]
  2. TOPROL-XL [Suspect]

REACTIONS (2)
  - EYELID OEDEMA [None]
  - RASH [None]
